FAERS Safety Report 18245225 (Version 4)
Quarter: 2021Q2

REPORT INFORMATION
  Report Type: Spontaneous
  Country: JP (occurrence: JP)
  Receive Date: 20200909
  Receipt Date: 20210409
  Transmission Date: 20210717
  Serious: Yes (Death, Hospitalization, Other)
  Sender: FDA-Public Use
  Company Number: JP-CHEPLA-C20202571

PATIENT
  Age: 25 Year
  Sex: Female

DRUGS (9)
  1. VORICONAZOLE. [Suspect]
     Active Substance: VORICONAZOLE
     Indication: PRODUCT USED FOR UNKNOWN INDICATION
     Route: 048
  2. VALIXA TABLETS 450MG [Suspect]
     Active Substance: VALGANCICLOVIR HYDROCHLORIDE
     Indication: PRODUCT USED FOR UNKNOWN INDICATION
     Dosage: 450 MILLIGRAM 2 TIMES A DAY
     Route: 048
  3. VALIXA TABLETS 450MG [Suspect]
     Active Substance: VALGANCICLOVIR HYDROCHLORIDE
     Indication: PRODUCT USED FOR UNKNOWN INDICATION
     Route: 048
  4. AMBISOME [Suspect]
     Active Substance: AMPHOTERICIN B
     Indication: PRODUCT USED FOR UNKNOWN INDICATION
     Route: 041
  5. PREVYMIS [Concomitant]
     Active Substance: LETERMOVIR
     Indication: PRODUCT USED FOR UNKNOWN INDICATION
  6. DENOSINE FOR I.V.INFUSION 500MG [Suspect]
     Active Substance: GANCICLOVIR SODIUM
     Route: 041
  7. PREDONINE [Concomitant]
     Active Substance: PREDNISOLONE
     Indication: PRODUCT USED FOR UNKNOWN INDICATION
  8. VITAMIN C [Concomitant]
     Active Substance: ASCORBIC ACID
     Indication: PRODUCT USED FOR UNKNOWN INDICATION
  9. ZOVIRAX [Concomitant]
     Active Substance: ACYCLOVIR
     Indication: PRODUCT USED FOR UNKNOWN INDICATION
     Route: 048

REACTIONS (14)
  - Pneumocystis jirovecii pneumonia [Unknown]
  - Fungal infection [Fatal]
  - Packed red blood cell transfusion [Unknown]
  - Platelet count decreased [Unknown]
  - Dyspnoea [Unknown]
  - Myelosuppression [Unknown]
  - Platelet transfusion [Unknown]
  - Lymphopenia [Unknown]
  - Staphylococcal infection [Unknown]
  - Hepatic hypertrophy [Unknown]
  - Leukaemia [Unknown]
  - Neutrophil count decreased [Unknown]
  - Red blood cell count decreased [Unknown]
  - Mucormycosis [Unknown]
